FAERS Safety Report 12906958 (Version 2)
Quarter: 2016Q4

REPORT INFORMATION
  Report Type: Spontaneous
  Country: IT (occurrence: IT)
  Receive Date: 20161103
  Receipt Date: 20161108
  Transmission Date: 20170207
  Serious: Yes (Hospitalization)
  Sender: FDA-Public Use
  Company Number: IT-PFIZER INC-2016502972

PATIENT
  Age: 78 Year
  Sex: Female

DRUGS (4)
  1. XALKORI [Suspect]
     Active Substance: CRIZOTINIB
     Indication: LUNG NEOPLASM MALIGNANT
     Dosage: 500 MG, DAILY
     Route: 048
     Dates: start: 20160926, end: 20161023
  2. MEDROL [Concomitant]
     Active Substance: METHYLPREDNISOLONE
     Indication: BONE PAIN
  3. CLEXANE [Concomitant]
     Active Substance: ENOXAPARIN SODIUM
     Indication: PULMONARY EMBOLISM
     Dosage: 8000 IU, UNK
     Route: 058
  4. CYMBALTA [Concomitant]
     Active Substance: DULOXETINE HYDROCHLORIDE
     Indication: DEPRESSION
     Route: 048

REACTIONS (6)
  - Enteritis [Recovering/Resolving]
  - Skin discolouration [Recovering/Resolving]
  - Dehydration [Recovering/Resolving]
  - Aphasia [Recovering/Resolving]
  - Pyrexia [Recovering/Resolving]
  - Hypokalaemia [Recovering/Resolving]

NARRATIVE: CASE EVENT DATE: 20161024
